FAERS Safety Report 5596151-9 (Version None)
Quarter: 2008Q1

REPORT INFORMATION
  Report Type: 
  Country: None (occurrence: None)
  Receive Date: 20080118
  Receipt Date: 20070918
  Transmission Date: 20080703
  Serious: Yes (Hospitalization)
  Sender: FDA-Public Use
  Company Number: HQWYE687612MAY05

PATIENT
  Sex: Male
  Weight: 93.1 kg

DRUGS (13)
  1. TACROLIMUS [Suspect]
     Indication: PROPHYLAXIS AGAINST TRANSPLANT REJECTION
     Route: 048
  2. PREDNISONE [Suspect]
     Indication: PROPHYLAXIS AGAINST TRANSPLANT REJECTION
     Route: 048
  3. PANTOPRAZOLE SODIUM [Concomitant]
     Route: 065
  4. VALACYCLOVIR HCL [Concomitant]
     Dosage: UNKNOWN
     Route: 065
     Dates: end: 20050701
  5. VALGANCICLOVIR HCL [Concomitant]
     Route: 065
     Dates: end: 20050101
  6. ZENAPAX [Suspect]
     Indication: PROPHYLAXIS AGAINST TRANSPLANT REJECTION
     Dosage: UNKNOWN
     Route: 065
  7. CITRACAL [Concomitant]
     Dosage: OD
     Route: 065
  8. FLOMAX [Concomitant]
     Route: 065
  9. FERROUS GLUCONATE [Concomitant]
     Route: 065
  10. ARANESP [Concomitant]
     Route: 065
  11. MAGNESIUM [Concomitant]
     Route: 065
  12. MYCOPHENOLATE MOFETIL [Suspect]
     Indication: PROPHYLAXIS AGAINST TRANSPLANT REJECTION
     Route: 048
  13. DIDROCAL [Concomitant]
     Dosage: OD
     Route: 065

REACTIONS (1)
  - CRYPTOGENIC ORGANISING PNEUMONIA [None]
